FAERS Safety Report 12742973 (Version 1)
Quarter: 2016Q3

REPORT INFORMATION
  Report Type: Spontaneous
  Country: US (occurrence: US)
  Receive Date: 20160914
  Receipt Date: 20160914
  Transmission Date: 20161109
  Serious: Yes (Hospitalization)
  Sender: FDA-Public Use
  Company Number: None

PATIENT
  Age: 65 Year
  Sex: Female

DRUGS (2)
  1. ARANESP [Suspect]
     Active Substance: DARBEPOETIN ALFA
     Indication: RENAL TRANSPLANT
     Dosage: OTHER STRENGTH:;OTHER DOSE:;OTHER FREQUENCY:EVERY 2 WEEKS;OTHER ROUTE:
     Route: 058
     Dates: start: 20150620
  2. SENSIPAR [Suspect]
     Active Substance: CINACALCET HYDROCHLORIDE
     Indication: RENAL TRANSPLANT
     Route: 048
     Dates: start: 20150205

REACTIONS (1)
  - Brain operation [None]
